FAERS Safety Report 7290725-5 (Version None)
Quarter: 2011Q1

REPORT INFORMATION
  Report Type: 
  Country: None (occurrence: None)
  Receive Date: 20110214
  Receipt Date: 20110203
  Transmission Date: 20110831
  Serious: Yes (Death, Other)
  Sender: FDA-Public Use
  Company Number: JP-ROCHE-748167

PATIENT
  Sex: Female
  Weight: 41 kg

DRUGS (12)
  1. LEVOFOLINATE [Concomitant]
     Dosage: ACTION TAKEN: DISCONTINUED
     Route: 041
     Dates: start: 20101208, end: 20101208
  2. TAKEPRON [Concomitant]
     Dosage: DOSE FORM: UNCERTAINTY, DOSE IS UNCERTAIN
     Route: 065
     Dates: start: 20101020
  3. AVASTIN [Suspect]
     Indication: COLON CANCER METASTATIC
     Dosage: ACTION TAKEN: DISCONTINUED
     Route: 041
     Dates: start: 20101208, end: 20101208
  4. MAGMITT [Concomitant]
     Dosage: NOTE: DOSAGE IS UNCERTAIN.
     Route: 048
     Dates: start: 20101112
  5. DECADRON [Concomitant]
     Dosage: DOSE FORM: UNCERTAINTY, DRUG: DECADRON (DEXAMETHASONE SODIUM PHOSPHATE)
     Route: 065
     Dates: start: 20101208, end: 20101209
  6. EMEND [Concomitant]
     Route: 048
     Dates: start: 20101208
  7. 5-FU [Suspect]
     Dosage: ROUTE: INTRAVENOUS DRIP, ACTION TAKEN: DISCONTINUED
     Route: 040
     Dates: start: 20101208, end: 20101210
  8. FERROUS CITRATE [Concomitant]
     Dosage: FORM: PERORAL AGENT, DOSE IS UNCERTAIN
     Route: 048
     Dates: start: 20101025
  9. 5-FU [Suspect]
     Indication: COLON CANCER METASTATIC
     Route: 040
     Dates: start: 20101208, end: 20101208
  10. ELPLAT [Suspect]
     Indication: COLON CANCER METASTATIC
     Dosage: ACTION TAKEN: DISCONTINUED
     Route: 041
     Dates: start: 20101208, end: 20101208
  11. DUROTEP [Concomitant]
     Dosage: DOSE FORM: UNCERTAINITY
     Route: 065
     Dates: start: 20101108
  12. OXINORM [Concomitant]
     Dosage: NOTE: FOR UNCERTAIN DOSAGE AND TON, FORM: POWDERED MEDICINE,DRUG:OXINORM (OXYCODONE HYDROCHLORIDE)
     Route: 048

REACTIONS (6)
  - C-REACTIVE PROTEIN INCREASED [None]
  - BLOOD POTASSIUM INCREASED [None]
  - BLOOD CREATININE INCREASED [None]
  - DEATH [None]
  - LOSS OF CONSCIOUSNESS [None]
  - DYSPNOEA [None]
